FAERS Safety Report 16357702 (Version 1)
Quarter: 2019Q2

REPORT INFORMATION
  Report Type: Spontaneous
  Country: PL (occurrence: PL)
  Receive Date: 20190527
  Receipt Date: 20190527
  Transmission Date: 20190711
  Serious: Yes (Hospitalization)
  Sender: FDA-Public Use
  Company Number: PL-BAUSCH-BL-2019-015311

PATIENT
  Age: 29 Year
  Sex: Female

DRUGS (3)
  1. DIAZEPAM. [Suspect]
     Active Substance: DIAZEPAM
     Indication: DYSTONIA
     Route: 065
     Dates: start: 201711
  2. D-PENICILLAMINE [Suspect]
     Active Substance: PENICILLAMINE
     Indication: HEPATO-LENTICULAR DEGENERATION
     Dosage: LOW INITIAL DOSE
     Route: 065
     Dates: start: 2017, end: 2017
  3. D-PENICILLAMINE [Suspect]
     Active Substance: PENICILLAMINE
     Dosage: DOSAGE WAS INCREASED TO 1000 MG DAILY
     Route: 065
     Dates: start: 2017

REACTIONS (3)
  - Drug ineffective [Unknown]
  - Condition aggravated [Not Recovered/Not Resolved]
  - Hepato-lenticular degeneration [Not Recovered/Not Resolved]

NARRATIVE: CASE EVENT DATE: 2017
